FAERS Safety Report 13970386 (Version 1)
Quarter: 2017Q3

REPORT INFORMATION
  Report Type: Spontaneous
  Country: CA (occurrence: US)
  Receive Date: 20170914
  Receipt Date: 20170914
  Transmission Date: 20171128
  Serious: No
  Sender: FDA-Public Use
  Company Number: CA-ASTELLAS-2017US029452

PATIENT

DRUGS (1)
  1. XTANDI [Suspect]
     Active Substance: ENZALUTAMIDE
     Indication: HEPATIC CANCER
     Route: 048

REACTIONS (2)
  - Therapeutic response unexpected [Unknown]
  - Off label use [Unknown]
